FAERS Safety Report 7648896-4 (Version None)
Quarter: 2011Q3

REPORT INFORMATION
  Report Type: 
  Country: None (occurrence: None)
  Receive Date: 20110801
  Receipt Date: 20110720
  Transmission Date: 20111222
  Serious: Yes (Hospitalization, Other)
  Sender: FDA-Public Use
  Company Number: CA-AMGEN-CANSP2011009091

PATIENT
  Age: 72 Year
  Sex: Female

DRUGS (3)
  1. METHOTREXATE [Concomitant]
     Dosage: 15 MG, UNK
     Route: 058
     Dates: start: 20010101
  2. ENBREL [Suspect]
     Indication: RHEUMATOID ARTHRITIS
     Dosage: 25 MG, Q2WK
     Route: 058
     Dates: start: 20060227, end: 20100101
  3. PREDNISONE [Concomitant]
     Dosage: 5 G, UNK
     Route: 048
     Dates: start: 20090101

REACTIONS (1)
  - LUNG NEOPLASM MALIGNANT [None]
